FAERS Safety Report 8005152-2 (Version None)
Quarter: 2011Q4

REPORT INFORMATION
  Report Type: 
  Country: None (occurrence: None)
  Receive Date: 20111223
  Receipt Date: 20111220
  Transmission Date: 20120403
  Serious: No
  Sender: FDA-Public Use
  Company Number: US-BAYER-2011-122821

PATIENT
  Sex: Female

DRUGS (3)
  1. TOPROL-XL [Concomitant]
  2. ALEVE (CAPLET) [Suspect]
     Dosage: UNK
     Route: 048
     Dates: start: 20111219, end: 20111219
  3. HYDROCHLOROTHIAZIDE [Concomitant]

REACTIONS (2)
  - THERAPEUTIC PRODUCT INEFFECTIVE [None]
  - CHEST DISCOMFORT [None]
